FAERS Safety Report 8843462 (Version 2)
Quarter: 2012Q4

REPORT INFORMATION
  Report Type: Report from Study
  Country: CA (occurrence: CA)
  Receive Date: 20121016
  Receipt Date: 20121019
  Transmission Date: 20130627
  Serious: Yes (Hospitalization, Other)
  Sender: FDA-Public Use
  Company Number: CA-ROCHE-1103857

PATIENT
  Age: 55 Year
  Sex: Male
  Weight: 103.51 kg

DRUGS (4)
  1. BEVACIZUMAB [Suspect]
     Indication: GLIOBLASTOMA
     Route: 042
     Dates: start: 20120816, end: 20120927
  2. CRESTOR [Concomitant]
  3. MAVIK [Concomitant]
  4. DIPHENHYDRAMINE HCL [Concomitant]
     Route: 048
     Dates: start: 20120816, end: 20120816

REACTIONS (4)
  - Injection site extravasation [Unknown]
  - Tremor [Not Recovered/Not Resolved]
  - Asthenia [Not Recovered/Not Resolved]
  - Disease progression [Not Recovered/Not Resolved]
